FAERS Safety Report 9257758 (Version 1)
Quarter: 2013Q1

REPORT INFORMATION
  Report Type: Spontaneous
  Country: US (occurrence: None)
  Receive Date: 20121212
  Receipt Date: 20121212
  Transmission Date: 20140127
  Serious: No
  Sender: FDA-Public Use
  Company Number: 1208USA012307

PATIENT
  Sex: Female

DRUGS (5)
  1. VICTRELIS [Suspect]
     Indication: HEPATITIS C
     Dosage: 800 MG TID, OTHER
  2. RIBAVIRIN [Suspect]
     Indication: HEPATITIS C
     Route: 048
  3. PEGASYS [Suspect]
     Indication: HEPATITIS C
  4. NEXIUM (ESOMEPRAZOLE MAGNESIUM) [Concomitant]
  5. THERAPY UNSPECIFIED [Concomitant]

REACTIONS (9)
  - Drug ineffective [None]
  - Chest pain [None]
  - Dyspnoea [None]
  - Hyperhidrosis [None]
  - Pain in extremity [None]
  - Hypothyroidism [None]
  - Pleurisy [None]
  - Recurring skin boils [None]
  - Dental caries [None]
